FAERS Safety Report 7625911-5 (Version None)
Quarter: 2011Q3

REPORT INFORMATION
  Report Type: 
  Country: None (occurrence: None)
  Receive Date: 20110721
  Receipt Date: 20110721
  Transmission Date: 20111222
  Serious: Yes (Hospitalization)
  Sender: FDA-Public Use
  Company Number: None

PATIENT
  Age: 81 Year
  Sex: Male
  Weight: 55 kg

DRUGS (1)
  1. TRAMADOL HCL [Suspect]

REACTIONS (4)
  - PROTRUSION TONGUE [None]
  - TRISMUS [None]
  - MYOCLONUS [None]
  - CONVULSION [None]
